FAERS Safety Report 12756086 (Version 1)
Quarter: 2016Q3

REPORT INFORMATION
  Report Type: Spontaneous
  Country: NZ (occurrence: NZ)
  Receive Date: 20160916
  Receipt Date: 20160916
  Transmission Date: 20161109
  Serious: Yes (Hospitalization)
  Sender: FDA-Public Use
  Company Number: NZ-ABBVIE-16P-118-1719284-00

PATIENT
  Age: 72 Year
  Sex: Female
  Weight: 42 kg

DRUGS (8)
  1. GABAPENTIN. [Concomitant]
     Active Substance: GABAPENTIN
     Indication: OSTEOARTHRITIS
     Route: 048
     Dates: end: 20160901
  2. GABAPENTIN. [Concomitant]
     Active Substance: GABAPENTIN
     Route: 048
     Dates: start: 20160901
  3. RIBAVIRIN. [Suspect]
     Active Substance: RIBAVIRIN
     Indication: CHRONIC HEPATITIS C
     Dosage: 600MG IN THE AM: 400MG IN THE PM
     Route: 048
     Dates: start: 20160820, end: 20160901
  4. AMLODIPINE [Concomitant]
     Active Substance: AMLODIPINE BESYLATE
     Route: 048
     Dates: start: 20160820
  5. FENTANYL. [Concomitant]
     Active Substance: FENTANYL
     Indication: OSTEOARTHRITIS
     Route: 061
     Dates: end: 20160831
  6. AMLODIPINE [Concomitant]
     Active Substance: AMLODIPINE BESYLATE
     Indication: HYPERTENSION
     Route: 048
     Dates: end: 20160819
  7. FENTANYL. [Concomitant]
     Active Substance: FENTANYL
     Route: 061
     Dates: start: 20160901
  8. VIEKIRA PAK [Suspect]
     Active Substance: DASABUVIR\OMBITASVIR\PARITAPREVIR\RITONAVIR
     Indication: CHRONIC HEPATITIS C
     Dosage: AS PER DOSING INSTRUCTIONS
     Route: 048
     Dates: start: 20160820, end: 20160901

REACTIONS (5)
  - Hepatic failure [Recovering/Resolving]
  - Nausea [Recovered/Resolved]
  - Hepatic encephalopathy [Recovering/Resolving]
  - Hyperbilirubinaemia [Recovering/Resolving]
  - Vomiting [Recovered/Resolved]

NARRATIVE: CASE EVENT DATE: 20160825
